FAERS Safety Report 19588854 (Version 2)
Quarter: 2021Q3

REPORT INFORMATION
  Report Type: Spontaneous
  Country: US (occurrence: US)
  Receive Date: 20210721
  Receipt Date: 20210826
  Transmission Date: 20211014
  Serious: No
  Sender: FDA-Public Use
  Company Number: US-ASTRAZENECA-2021A575166

PATIENT
  Age: 71 Year
  Sex: Female
  Weight: 131.1 kg

DRUGS (1)
  1. BYDUREON BCISE [Suspect]
     Active Substance: EXENATIDE
     Indication: TYPE 2 DIABETES MELLITUS
     Dosage: BYDUREON AI, 2MG, INJECTION
     Route: 058
     Dates: start: 2019

REACTIONS (5)
  - Dry mouth [Not Recovered/Not Resolved]
  - Device use issue [Unknown]
  - Weight increased [Recovered/Resolved]
  - Device issue [Unknown]
  - Weight decreased [Not Recovered/Not Resolved]

NARRATIVE: CASE EVENT DATE: 2019
